FAERS Safety Report 4633231-6 (Version None)
Quarter: 2005Q2

REPORT INFORMATION
  Report Type: 
  Country: None (occurrence: None)
  Receive Date: 20050408
  Receipt Date: 20050331
  Transmission Date: 20051028
  Serious: Yes (Other)
  Sender: FDA-Public Use
  Company Number: 200410566BFR

PATIENT
  Age: 27 Year
  Sex: Female

DRUGS (1)
  1. NIFEDIPINE [Suspect]
     Indication: UTERINE CONTRACTIONS DURING PREGNANCY
     Dosage: ONCE, ORAL
     Route: 048
     Dates: start: 20041001

REACTIONS (1)
  - NO ADVERSE DRUG EFFECT [None]
